FAERS Safety Report 10024110 (Version 2)
Quarter: 2014Q2

REPORT INFORMATION
  Report Type: Spontaneous
  Country: US (occurrence: US)
  Receive Date: 20140320
  Receipt Date: 20140403
  Transmission Date: 20141212
  Serious: No
  Sender: FDA-Public Use
  Company Number: US-PFIZER INC-2014076633

PATIENT
  Age: 51 Year
  Sex: Male
  Weight: 131 kg

DRUGS (19)
  1. NEURONTIN [Suspect]
     Indication: NERVE INJURY
     Dosage: 800 MG, 3X/DAY
  2. MORPHINE [Concomitant]
     Dosage: 15 MG, 2X/DAY
  3. LINZESS [Concomitant]
     Dosage: 290 UG, DAILY
  4. ERGOCALCIFEROL [Concomitant]
     Dosage: 1.25 MG, DAILY
  5. CYMBALTA [Concomitant]
     Dosage: 60 MG, DAILY
     Dates: end: 201403
  6. FLEXERIL [Concomitant]
     Dosage: 20 MG, 3X/DAY
  7. DIAZEPAM [Concomitant]
     Dosage: 10 MG, 3X/DAY
  8. HYDROCODONE [Concomitant]
     Dosage: UNK
  9. TOPIRAMATE [Concomitant]
     Dosage: 50 MG, DAILY
  10. PYOLYSIN OINTMENT [Concomitant]
     Dosage: 2 GTT, DAILY
  11. VERAPAMIL [Concomitant]
     Dosage: 80 MG, DAILY
  12. VENLAFAXINE [Concomitant]
     Dosage: 25 MG, 2X/DAY
  13. OMEPRAZOLE [Concomitant]
     Dosage: 20 MG, 3X/DAY
  14. TRIAMCINOLONE ACETONIDE [Concomitant]
     Dosage: UNK, 3X/DAY
  15. LISINOPRIL [Concomitant]
     Dosage: 20 MG, DAILY
  16. CRESTOR [Concomitant]
     Dosage: 10 MG, DAILY
  17. PROCHLORPERAZINE [Concomitant]
     Indication: HEADACHE
     Dosage: UNK, EVERY 6 HOURS
  18. ALPHAGAN-P [Concomitant]
     Dosage: 2 GTT, UNK
  19. PRAZOSIN [Concomitant]
     Dosage: 2 MG, DAILY

REACTIONS (2)
  - Dyspepsia [Unknown]
  - Constipation [Unknown]
